FAERS Safety Report 6314105-1 (Version None)
Quarter: 2009Q3

REPORT INFORMATION
  Report Type: 
  Country: None (occurrence: None)
  Receive Date: 20090818
  Receipt Date: 20090803
  Transmission Date: 20100115
  Serious: Yes (Death, Life-Threatening, Hospitalization)
  Sender: FDA-Public Use
  Company Number: DE-GENENTECH-288705

PATIENT
  Sex: Male

DRUGS (8)
  1. RITUXIMAB [Suspect]
     Indication: BURKITT'S LYMPHOMA
     Dosage: UNK
     Route: 037
     Dates: start: 20090601
  2. TOCILIZUMAB [Suspect]
     Indication: RHEUMATOID ARTHRITIS
     Dosage: 8 MG/KG, Q4W
     Route: 042
     Dates: start: 20051222, end: 20070926
  3. METEX [Suspect]
     Indication: RHEUMATOID ARTHRITIS
     Dosage: 10 MG, 1/WEEK
     Route: 058
     Dates: start: 20020101, end: 20090501
  4. HUMIRA [Suspect]
     Indication: RHEUMATOID ARTHRITIS
     Dosage: 40 MG, UNK
     Route: 058
     Dates: start: 20080201, end: 20090501
  5. CYCLOPHOSPHAMIDE [Concomitant]
     Indication: BURKITT'S LYMPHOMA
     Dosage: UNK
     Dates: start: 20090601
  6. DOXORUBICIN HCL [Concomitant]
     Indication: BURKITT'S LYMPHOMA
     Dosage: UNK
     Dates: start: 20090601
  7. PREDNISONE [Concomitant]
     Indication: BURKITT'S LYMPHOMA
     Dosage: UNK
     Dates: start: 20090601
  8. VINCRISTINE [Concomitant]
     Indication: BURKITT'S LYMPHOMA
     Dosage: UNK
     Dates: start: 20090601

REACTIONS (3)
  - BONE MARROW FAILURE [None]
  - BURKITT'S LYMPHOMA [None]
  - SEPSIS [None]
